FAERS Safety Report 6457308-8 (Version None)
Quarter: 2009Q4

REPORT INFORMATION
  Report Type: 
  Country: None (occurrence: None)
  Receive Date: 20091125
  Receipt Date: 20091119
  Transmission Date: 20100525
  Serious: Yes (Other)
  Sender: FDA-Public Use
  Company Number: GXKR2009GB11347

PATIENT
  Age: 82 Year
  Sex: Female
  Weight: 58 kg

DRUGS (4)
  1. CLARITHROMYCIN [Suspect]
     Indication: INFLUENZA
     Dosage: UNK
     Route: 048
     Dates: start: 20091009, end: 20091012
  2. MELITRACEN [Concomitant]
  3. FLUPENTIXOL [Concomitant]
  4. FRUMIL [Concomitant]
     Dosage: UNK
     Route: 065

REACTIONS (1)
  - URINARY RETENTION [None]
